FAERS Safety Report 5901025-7 (Version None)
Quarter: 2008Q3

REPORT INFORMATION
  Report Type: 
  Country: None (occurrence: None)
  Receive Date: 20080929
  Receipt Date: 20080918
  Transmission Date: 20090109
  Serious: Yes (Death)
  Sender: FDA-Public Use
  Company Number: US-JNJFOC-20080905750

PATIENT
  Age: 21 Year
  Sex: Male

DRUGS (3)
  1. FENTANYL [Suspect]
     Indication: DRUG USE FOR UNKNOWN INDICATION
     Route: 065
  2. METHADONE HCL [Interacting]
     Indication: DRUG USE FOR UNKNOWN INDICATION
     Route: 065
  3. OXYCODONE HCL [Interacting]
     Indication: DRUG USE FOR UNKNOWN INDICATION
     Route: 065

REACTIONS (3)
  - DRUG INTERACTION [None]
  - DRUG TOXICITY [None]
  - INTENTIONAL DRUG MISUSE [None]
